FAERS Safety Report 7644040-8 (Version None)
Quarter: 2011Q3

REPORT INFORMATION
  Report Type: 
  Country: None (occurrence: None)
  Receive Date: 20110729
  Receipt Date: 20110726
  Transmission Date: 20111222
  Serious: Yes (Other)
  Sender: FDA-Public Use
  Company Number: US-BRISTOL-MYERS SQUIBB COMPANY-15929078

PATIENT
  Sex: Male

DRUGS (3)
  1. GLUCOPHAGE [Suspect]
  2. GLIPIZIDE [Suspect]
  3. INSULIN [Suspect]

REACTIONS (1)
  - ATRIAL FIBRILLATION [None]
